FAERS Safety Report 8197773-1 (Version None)
Quarter: 2012Q1

REPORT INFORMATION
  Report Type: 
  Country: None (occurrence: None)
  Receive Date: 20120309
  Receipt Date: 20120301
  Transmission Date: 20120608
  Serious: Yes (Hospitalization, Congenital Anomaly)
  Sender: FDA-Public Use
  Company Number: DE-BRISTOL-MYERS SQUIBB COMPANY-16435323

PATIENT
  Age: 5 Month
  Sex: Female
  Weight: 3 kg

DRUGS (3)
  1. METFORMIN HCL [Suspect]
     Route: 064
  2. LEVOTHYROXINE SODIUM [Concomitant]
     Dosage: 100MG- MAR11-3MAY11-2 MONTHS
     Route: 064
     Dates: start: 20100803, end: 20110501
  3. COLECALCIFEROL [Concomitant]
     Route: 064
     Dates: start: 20100803, end: 20110111

REACTIONS (1)
  - OVARIAN CYST [None]
